FAERS Safety Report 7035907-2 (Version None)
Quarter: 2010Q4

REPORT INFORMATION
  Report Type: 
  Country: None (occurrence: None)
  Receive Date: 20101008
  Receipt Date: 20100929
  Transmission Date: 20110411
  Serious: Yes (Other)
  Sender: FDA-Public Use
  Company Number: PHHO2010AR15158

PATIENT

DRUGS (1)
  1. ACZ885 ACZ+ [Suspect]
     Dosage: UNK

REACTIONS (4)
  - ORAL DISORDER [None]
  - ORAL HERPES [None]
  - PAIN [None]
  - PYREXIA [None]
